FAERS Safety Report 24861905 (Version 1)
Quarter: 2025Q1

REPORT INFORMATION
  Report Type: Spontaneous
  Country: US (occurrence: US)
  Receive Date: 20250120
  Receipt Date: 20250120
  Transmission Date: 20250409
  Serious: No
  Sender: IPSEN BIOPHARMACEUTICALS, INC.
  Company Number: US-IPSEN Group, Research and Development-2025-00443

PATIENT
  Age: 93 Year
  Sex: Male
  Weight: 89 kg

DRUGS (18)
  1. TAZVERIK [Suspect]
     Active Substance: TAZEMETOSTAT HYDROBROMIDE
     Indication: Follicular lymphoma
     Route: 048
     Dates: start: 20241231
  2. CLARINEX [Concomitant]
     Active Substance: DESLORATADINE
  3. COLACE [Concomitant]
     Active Substance: DOCUSATE SODIUM
  4. VITAMIN D3 [Concomitant]
     Active Substance: CHOLECALCIFEROL
  5. FLOMAX [Concomitant]
     Active Substance: TAMSULOSIN HYDROCHLORIDE
  6. LIPITOR [Concomitant]
     Active Substance: ATORVASTATIN CALCIUM
  7. MELOXICAM [Concomitant]
     Active Substance: MELOXICAM
  8. METOPROLOL SUCCINATE [Concomitant]
     Active Substance: METOPROLOL SUCCINATE
  9. NORVASC [Concomitant]
     Active Substance: AMLODIPINE BESYLATE
  10. OMEGA-3 ACIDS [Concomitant]
     Active Substance: OMEGA-3 FATTY ACIDS
  11. OSTEO-BI-FLEX [Concomitant]
  12. PROTONIX [Concomitant]
     Active Substance: PANTOPRAZOLE SODIUM
  13. SENNA S/SENNA-DOCUSATE [Concomitant]
  14. SERTRALINE HYDROCHLORIDE [Concomitant]
     Active Substance: SERTRALINE HYDROCHLORIDE
  15. TAMOXIFEN [Concomitant]
     Active Substance: TAMOXIFEN
  16. TRAMADOL [Concomitant]
     Active Substance: TRAMADOL
  17. TYLENOL [Concomitant]
     Active Substance: ACETAMINOPHEN
  18. LATANOPROST [Concomitant]
     Active Substance: LATANOPROST

REACTIONS (3)
  - Dyspnoea [Not Recovered/Not Resolved]
  - Asthenia [Not Recovered/Not Resolved]
  - Fatigue [Not Recovered/Not Resolved]
